FAERS Safety Report 4270729-7 (Version None)
Quarter: 2004Q1

REPORT INFORMATION
  Report Type: 
  Country: None (occurrence: None)
  Receive Date: 20040113
  Receipt Date: 20031229
  Transmission Date: 20041129
  Serious: Yes (Hospitalization, Disabling)
  Sender: FDA-Public Use
  Company Number: NSADSS2001012222

PATIENT
  Age: 59 Year
  Sex: Female
  Weight: 51.7101 kg

DRUGS (21)
  1. REMICADE [Suspect]
     Indication: RHEUMATOID ARTHRITIS
     Dosage: 1 IN 1 AS NECESSARY, INTRAVENOUS
     Route: 042
     Dates: start: 20000630, end: 20000630
  2. REMICADE [Suspect]
     Indication: RHEUMATOID ARTHRITIS
     Dosage: 1 IN 1 AS NECESSARY, INTRAVENOUS
     Route: 042
     Dates: start: 20000713, end: 20000713
  3. REMICADE [Suspect]
     Indication: RHEUMATOID ARTHRITIS
     Dosage: 1 IN 1 AS NECESSARY, INTRAVENOUS
     Route: 042
     Dates: start: 20000814, end: 20000814
  4. REMICADE [Suspect]
     Indication: RHEUMATOID ARTHRITIS
     Dosage: 1 IN 1 AS NECESSARY, INTRAVENOUS
     Route: 042
     Dates: start: 20001010, end: 20001010
  5. REMICADE [Suspect]
     Indication: RHEUMATOID ARTHRITIS
     Dosage: 1 IN 1 AS NECESSARY, INTRAVENOUS
     Route: 042
     Dates: start: 20001205, end: 20001205
  6. REMICADE [Suspect]
     Indication: RHEUMATOID ARTHRITIS
     Dosage: 1 IN 1 AS NECESSARY, INTRAVENOUS
     Route: 042
     Dates: start: 20010130, end: 20010130
  7. METHOTREXATE [Concomitant]
  8. DELTASONE [Concomitant]
  9. AZULFIDINE [Concomitant]
  10. FOLIC ACID [Concomitant]
  11. PREMARIN [Concomitant]
  12. ISONIAZID [Concomitant]
  13. RIFAMPIN [Concomitant]
  14. PYRIDOXINE HCL TAB [Concomitant]
  15. PYRAZINEMIDE (PYRAZINAMIDE) [Concomitant]
  16. PEPCID [Concomitant]
  17. MVI (MULTIVITAMINS) [Concomitant]
  18. MYAMBUTOL [Concomitant]
  19. MOTRIN [Concomitant]
  20. CLARITHROMYCIN [Concomitant]
  21. LEVAQUIN [Concomitant]

REACTIONS (13)
  - ACID FAST STAIN POSITIVE [None]
  - ASTHMA [None]
  - BRONCHIECTASIS [None]
  - BRONCHITIS [None]
  - DECREASED APPETITE [None]
  - EMPHYSEMA [None]
  - HAEMANGIOMA OF LIVER [None]
  - INFLUENZA [None]
  - NECROTISING GRANULOMATOUS LYMPHADENITIS [None]
  - PNEUMONIA [None]
  - TUBERCULOSIS [None]
  - WEIGHT DECREASED [None]
  - WHITE BLOOD CELL COUNT INCREASED [None]
